FAERS Safety Report 6184786-4 (Version None)
Quarter: 2009Q2

REPORT INFORMATION
  Report Type: 
  Country: None (occurrence: None)
  Receive Date: 20090508
  Receipt Date: 20090506
  Transmission Date: 20091009
  Serious: Yes (Hospitalization)
  Sender: FDA-Public Use
  Company Number: GB-WYE-H09238509

PATIENT
  Sex: Male
  Weight: 68.2 kg

DRUGS (12)
  1. CMC-544 [Suspect]
     Indication: NON-HODGKIN'S LYMPHOMA
     Route: 042
     Dates: start: 20090428, end: 20090429
  2. ALLOPURINOL [Concomitant]
     Indication: PROPHYLAXIS
     Dosage: NOT PROVIDED
     Dates: start: 20080101
  3. MORPHINE SULFATE [Concomitant]
     Indication: PAIN
     Dosage: NOT PROVIDED
     Dates: start: 20080101
  4. BISACODYL [Concomitant]
     Dosage: NOT PROVIDED
     Dates: start: 20080101
  5. NITROGLYCERIN [Concomitant]
     Indication: ANGINA PECTORIS
     Dosage: NOT PROVIDED
     Dates: start: 20090101
  6. DOCUSATE SODIUM [Concomitant]
     Dosage: NOT PROVIDED
     Dates: start: 20080101
  7. ATORVASTATIN [Concomitant]
     Indication: HYPERCHOLESTEROLAEMIA
     Dosage: NOT PROVIDED
     Dates: start: 20080101
  8. LANSOPRAZOLE [Concomitant]
     Indication: DYSPEPSIA
     Dosage: NOT PROVIDED
     Dates: start: 20080101
  9. DILTIAZEM [Concomitant]
     Indication: ANGINA PECTORIS
     Dosage: NOT PROVIDED
     Dates: start: 20090401
  10. DILTIAZEM [Concomitant]
     Indication: HYPERTENSION
  11. RITUXIMAB/CMC-544 [Suspect]
     Indication: NON-HODGKIN'S LYMPHOMA
     Route: 042
     Dates: start: 20090428, end: 20090429
  12. TAMSULOSIN HCL [Concomitant]
     Dosage: NOT PROVIDED
     Dates: start: 20080101

REACTIONS (3)
  - DIZZINESS [None]
  - DYSPNOEA [None]
  - MALAISE [None]
